FAERS Safety Report 18388744 (Version 1)
Quarter: 2020Q4

REPORT INFORMATION
  Report Type: Spontaneous
  Country: IT (occurrence: IT)
  Receive Date: 20201015
  Receipt Date: 20201015
  Transmission Date: 20210114
  Serious: Yes (Death, Other)
  Sender: FDA-Public Use
  Company Number: IT-AMGEN-ITASP2020166384

PATIENT
  Age: 67 Year
  Sex: Female

DRUGS (3)
  1. TRASTUZUMAB. [Suspect]
     Active Substance: TRASTUZUMAB
     Indication: PAGET^S DISEASE OF THE VULVA
     Dosage: UNK, QWK
     Route: 065
     Dates: start: 201806, end: 2018
  2. TRASTUZUMAB. [Suspect]
     Active Substance: TRASTUZUMAB
     Dosage: UNK, 3 TIMES/WK
     Route: 065
     Dates: start: 201811
  3. PACLITAXEL. [Concomitant]
     Active Substance: PACLITAXEL
     Indication: PAGET^S DISEASE OF THE VULVA
     Dosage: UNK
     Dates: start: 201806

REACTIONS (10)
  - Death [Fatal]
  - Fatigue [Unknown]
  - Performance status decreased [Unknown]
  - Osteitis deformans [Unknown]
  - Constipation [Unknown]
  - Nausea [Unknown]
  - Neurotoxicity [Unknown]
  - Off label use [Unknown]
  - Alopecia [Unknown]
  - Anaemia [Unknown]

NARRATIVE: CASE EVENT DATE: 201806
